FAERS Safety Report 21301876 (Version 1)
Quarter: 2022Q3

REPORT INFORMATION
  Report Type: Spontaneous
  Country: US (occurrence: None)
  Receive Date: 20220906
  Receipt Date: 20220906
  Transmission Date: 20221026
  Serious: Yes (Other)
  Sender: FDA-Public Use
  Company Number: None

PATIENT
  Age: 72 Year
  Sex: Male
  Weight: 145 kg

DRUGS (1)
  1. CEFEPIME HYDROCHLORIDE [Suspect]
     Active Substance: CEFEPIME HYDROCHLORIDE
     Indication: Peripheral venous disease
     Dates: start: 20220519, end: 20220525

REACTIONS (3)
  - Lethargy [None]
  - White blood cell count increased [None]
  - Sedation [None]

NARRATIVE: CASE EVENT DATE: 20220525
